FAERS Safety Report 10970305 (Version 1)
Quarter: 2015Q1

REPORT INFORMATION
  Report Type: Spontaneous
  Country: CN (occurrence: CN)
  Receive Date: 20150331
  Receipt Date: 20150331
  Transmission Date: 20150721
  Serious: Yes (Life-Threatening, Hospitalization)
  Sender: FDA-Public Use
  Company Number: CN-NOVOPROD-443243

PATIENT
  Age: 70 Year
  Sex: Female

DRUGS (1)
  1. NOVORAPID [Suspect]
     Active Substance: INSULIN ASPART
     Indication: DIABETES MELLITUS
     Dosage: 18 U, TID
     Route: 058
     Dates: start: 20140615, end: 20140615

REACTIONS (5)
  - Cardiac failure [Unknown]
  - Hypoglycaemic coma [Recovering/Resolving]
  - Decreased appetite [Unknown]
  - Respiratory failure [Unknown]
  - Cerebrovascular accident [Unknown]

NARRATIVE: CASE EVENT DATE: 20140615
